FAERS Safety Report 7707817-6 (Version None)
Quarter: 2011Q3

REPORT INFORMATION
  Report Type: 
  Country: None (occurrence: None)
  Receive Date: 20110824
  Receipt Date: 20110817
  Transmission Date: 20111222
  Serious: Yes (Other)
  Sender: FDA-Public Use
  Company Number: PHHY2011US73629

PATIENT
  Sex: Female

DRUGS (2)
  1. PHYTONADIONE [Suspect]
     Dosage: UNK
  2. METHYLERGONOVINE MALEATE [Suspect]
     Dosage: 0.5 ML, (0.1 MG)
     Route: 030

REACTIONS (9)
  - ASPARTATE AMINOTRANSFERASE INCREASED [None]
  - NEONATAL ASPHYXIA [None]
  - CARDIOVASCULAR DISORDER [None]
  - BASE EXCESS [None]
  - ALANINE AMINOTRANSFERASE INCREASED [None]
  - HYPONATRAEMIA [None]
  - BLOOD ALKALINE PHOSPHATASE INCREASED [None]
  - WRONG DRUG ADMINISTERED [None]
  - VASOCONSTRICTION [None]
